FAERS Safety Report 23128948 (Version 1)
Quarter: 2023Q4

REPORT INFORMATION
  Report Type: Spontaneous
  Country: US (occurrence: US)
  Receive Date: 20231031
  Receipt Date: 20231031
  Transmission Date: 20240110
  Serious: Yes (Other)
  Sender: FDA-Public Use
  Company Number: US-BAYER-2023A151221

PATIENT
  Age: 86 Year
  Sex: Male

DRUGS (1)
  1. ALKA-SELTZER PLUS MAXIMUM STRENGTH DAY AND NIGHT COLD AND FLU POWERMAX [Suspect]
     Active Substance: ACETAMINOPHEN\DEXTROMETHORPHAN HYDROBROMIDE\DOXYLAMINE SUCCINATE\PHENYLEPHRINE HYDROCHLORIDE
     Dosage: 2 DF
     Route: 048
     Dates: start: 20231016, end: 20231022

REACTIONS (4)
  - Foreign body in throat [Unknown]
  - Foreign body in throat [Unknown]
  - Retching [Unknown]
  - Sneezing [Unknown]

NARRATIVE: CASE EVENT DATE: 20231016
